FAERS Safety Report 9008296 (Version 1)
Quarter: 2012Q4

REPORT INFORMATION
  Report Type: Spontaneous
  Country: US (occurrence: None)
  Receive Date: 20121227
  Receipt Date: 20121227
  Transmission Date: 20130627
  Serious: Yes (Other)
  Sender: FDA-Public Use
  Company Number: AUR-APL-2012-05513

PATIENT
  Age: 72 Year
  Sex: Female
  Weight: 57.6 kg

DRUGS (6)
  1. VENLAFAXINE (VENLAFAXINE) [Suspect]
     Indication: DRUG USE FOR UNKNOWN INDICATION
  2. EFFEXOR [Suspect]
     Indication: DEPRESSION
     Route: 048
  3. EFFEXOR [Suspect]
     Indication: ANXIETY
     Route: 048
  4. SYNTHROID (LEVOTHYROXINE SODIUIM) [Concomitant]
  5. LISINOPRIL (LISINOPRIL) [Concomitant]
  6. METFORMIN (METFORMIN) [Concomitant]

REACTIONS (4)
  - Recurrent cancer [None]
  - Breast cancer [None]
  - Nausea [None]
  - Gastric disorder [None]
